FAERS Safety Report 9780697 (Version 1)
Quarter: 2013Q4

REPORT INFORMATION
  Report Type: Spontaneous
  Country: CH (occurrence: CH)
  Receive Date: 20131224
  Receipt Date: 20131224
  Transmission Date: 20140711
  Serious: Yes (Hospitalization, Other)
  Sender: FDA-Public Use
  Company Number: CH-009507513-1312CHE009218

PATIENT
  Age: 69 Year
  Sex: Male

DRUGS (11)
  1. TIENAM [Suspect]
     Dosage: 500 MG, QID, TOTAL DAILY DOSE OF 2000 MG
     Route: 042
     Dates: start: 20130507
  2. PANTOZOL [Concomitant]
     Dosage: UNK
  3. TOREM [Concomitant]
     Dosage: UNK
  4. SERESTA [Concomitant]
     Dosage: UNK
  5. INSPRA [Concomitant]
     Dosage: UNK
  6. INDERAL [Concomitant]
     Dosage: UNK
  7. DUPHALAC [Concomitant]
     Dosage: UNK
  8. CIPRALEX [Concomitant]
     Dosage: UNK
  9. KONAKION [Concomitant]
     Dosage: UNK
  10. URSOFALK [Concomitant]
     Dosage: UNK
  11. LYRICA [Concomitant]
     Dosage: UNK

REACTIONS (4)
  - Suicide attempt [Recovered/Resolved]
  - Delirium [Recovered/Resolved]
  - Hallucination [Recovered/Resolved]
  - Confusional state [Recovered/Resolved]
